FAERS Safety Report 18463175 (Version 1)
Quarter: 2020Q4

REPORT INFORMATION
  Report Type: Spontaneous
  Country: JP (occurrence: JP)
  Receive Date: 20201104
  Receipt Date: 20201104
  Transmission Date: 20210114
  Serious: Yes (Other)
  Sender: FDA-Public Use
  Company Number: JP-EISAI MEDICAL RESEARCH-EC-2020-082915

PATIENT
  Age: 71 Year
  Sex: Male

DRUGS (2)
  1. LENVIMA [Suspect]
     Active Substance: LENVATINIB
     Route: 048
  2. LENVIMA [Suspect]
     Active Substance: LENVATINIB
     Indication: HEPATIC CANCER
     Route: 048

REACTIONS (2)
  - Interstitial lung disease [Unknown]
  - Dyspnoea [Unknown]
